FAERS Safety Report 10635807 (Version 2)
Quarter: 2014Q4

REPORT INFORMATION
  Report Type: Spontaneous
  Country: US (occurrence: US)
  Receive Date: 20141205
  Receipt Date: 20141205
  Transmission Date: 20150529
  Serious: No
  Sender: FDA-Public Use
  Company Number: US-GLAXOSMITHKLINE-US2014029612

PATIENT

DRUGS (1)
  1. NICOTROL [Suspect]
     Active Substance: NICOTINE
     Indication: PRODUCT USED FOR UNKNOWN INDICATION
     Dosage: DOSAGE FORM: INHALATION, 2 PUFFS OF INHALER
     Route: 055
     Dates: start: 20141014

REACTIONS (4)
  - Oral discomfort [Recovering/Resolving]
  - Glossodynia [Recovering/Resolving]
  - Malaise [Unknown]
  - Product quality issue [Recovering/Resolving]

NARRATIVE: CASE EVENT DATE: 2014
